FAERS Safety Report 18891547 (Version 3)
Quarter: 2025Q1

REPORT INFORMATION
  Report Type: Report from Study
  Country: CA (occurrence: CA)
  Receive Date: 20210215
  Receipt Date: 20250214
  Transmission Date: 20250409
  Serious: Yes (Other)
  Sender: KYOWA
  Company Number: CA-KYOWAKIRIN-2021BKK001808

PATIENT

DRUGS (6)
  1. BUROSUMAB [Suspect]
     Active Substance: BUROSUMAB
     Indication: Hereditary hypophosphataemic rickets
     Route: 058
     Dates: start: 20150901, end: 20190221
  2. BUROSUMAB [Suspect]
     Active Substance: BUROSUMAB
     Indication: Hereditary hypophosphataemic rickets
     Dosage: 50 MG, 1X/2 WEEKS
     Route: 058
     Dates: start: 20190320, end: 20191113
  3. BUROSUMAB [Suspect]
     Active Substance: BUROSUMAB
     Dosage: 55 MG, 1X/2 WEEKS
     Route: 058
     Dates: start: 20191127, end: 20200527
  4. BUROSUMAB [Suspect]
     Active Substance: BUROSUMAB
     Dosage: 60 MG, 1X/2 WEEKS
     Route: 058
     Dates: start: 20200610
  5. VITAMIN D NOS [Concomitant]
     Active Substance: CHOLECALCIFEROL\ERGOCALCIFEROL
     Indication: Product used for unknown indication
     Dosage: 7000 UNITS, ONCE WEEKLY
     Route: 048
     Dates: start: 20190215
  6. CALCIUM [Concomitant]
     Active Substance: CALCIUM
     Indication: Lactose intolerance
     Route: 065

REACTIONS (2)
  - Nephrocalcinosis [Unknown]
  - Pyelocaliectasis [Unknown]
